FAERS Safety Report 12732430 (Version 1)
Quarter: 2016Q3

REPORT INFORMATION
  Report Type: Spontaneous
  Country: US (occurrence: US)
  Receive Date: 20160910
  Receipt Date: 20160910
  Transmission Date: 20161109
  Serious: No
  Sender: FDA-Public Use
  Company Number: None

PATIENT
  Age: 29 Year
  Sex: Female
  Weight: 113.4 kg

DRUGS (4)
  1. VENCILOIN INHALER [Concomitant]
  2. CRANBERRY PILLS [Concomitant]
  3. ELLAONE 30MG [Suspect]
     Active Substance: ULIPRISTAL ACETATE
     Indication: CONTRACEPTION
     Dosage: OTHER STRENGTH:;OTHER DOSE:;OTHER FREQUENCY:ASAP 1 USE DOSAGE;OTHER ROUTE:
     Route: 048
     Dates: end: 20160729
  4. FLOVANT INHALER [Concomitant]

REACTIONS (3)
  - Uterine pain [None]
  - Metrorrhagia [None]
  - Nausea [None]

NARRATIVE: CASE EVENT DATE: 20160811
